FAERS Safety Report 11172029 (Version 6)
Quarter: 2015Q3

REPORT INFORMATION
  Report Type: Spontaneous
  Country: US (occurrence: US)
  Receive Date: 20150608
  Receipt Date: 20150803
  Transmission Date: 20151125
  Serious: Yes (Hospitalization)
  Sender: FDA-Public Use
  Company Number: US-PFIZER INC-2015191062

PATIENT
  Age: 43 Year
  Sex: Female

DRUGS (12)
  1. ACETAMINOPHEN AND CODEINE [Concomitant]
     Active Substance: ACETAMINOPHEN\CODEINE PHOSPHATE
     Indication: PAIN
     Dosage: AS NEEDED (CODEINE 120/12MG , PARACETAMOL 5 ML) (EVERY FOUR HOURS)
     Route: 048
  2. OMEPRAZOLE. [Concomitant]
     Active Substance: OMEPRAZOLE
     Dosage: 40 MG, DAILY (BEFORE A MEAL)
     Route: 048
  3. POLYETHYLENE GLYCOL [Concomitant]
     Active Substance: POLYETHYLENE GLYCOLS
     Indication: CONSTIPATION
     Dosage: 17 G, AS NEEDED (TWICE DAILY AS NEEDED)
     Route: 048
  4. GABAPENTIN. [Concomitant]
     Active Substance: GABAPENTIN
     Dosage: 300 MG, 3X/DAY
     Route: 048
  5. ONDANSETRON [Concomitant]
     Active Substance: ONDANSETRON
     Dosage: 4 MG EVERY EIGHT HOURS
     Route: 048
  6. DEPO-MEDROL [Suspect]
     Active Substance: METHYLPREDNISOLONE ACETATE
     Dosage: 1 ML (40MG/ML, 10 ML VIAL)
     Route: 014
  7. METOCLOPRAMIDE. [Concomitant]
     Active Substance: METOCLOPRAMIDE
     Dosage: 5 MG BEFORE MEALS AND AT BEDTIME
     Route: 048
  8. SENNOSIDES. [Concomitant]
     Active Substance: SENNOSIDES
     Indication: CONSTIPATION
     Dosage: 2 DF, AS NEEDED (8.6 MG TWO TABLETS BY MOUTH AT BEDTIME)
     Route: 048
  9. NYSTATIN. [Concomitant]
     Active Substance: NYSTATIN
     Dosage: 500000 IU, AS NEEDED (SWISH AND SWALLOW FOUR TIMES DAILY)
  10. LIDOCAINE. [Suspect]
     Active Substance: LIDOCAINE
     Dosage: 2 ML (1%, 50 ML VIAL)
     Route: 014
  11. MARCAINE [Suspect]
     Active Substance: BUPIVACAINE HYDROCHLORIDE
     Indication: MUSCULOSKELETAL PAIN
     Dosage: 2 ML (0.25%, 50 ML VIAL)
     Route: 014
     Dates: start: 20150528
  12. IBUPROFEN. [Concomitant]
     Active Substance: IBUPROFEN
     Indication: PAIN
     Dosage: 200 MG, AS NEEDED
     Route: 048

REACTIONS (3)
  - Arthritis bacterial [Unknown]
  - Product quality issue [Unknown]
  - Staphylococcal infection [Unknown]

NARRATIVE: CASE EVENT DATE: 201505
